FAERS Safety Report 5616304-0 (Version None)
Quarter: 2008Q1

REPORT INFORMATION
  Report Type: 
  Country: None (occurrence: None)
  Receive Date: 20080204
  Receipt Date: 20080119
  Transmission Date: 20080703
  Serious: Yes (Hospitalization)
  Sender: FDA-Public Use
  Company Number: ACO_00432_2008

PATIENT
  Sex: Male

DRUGS (2)
  1. ZANAFLEX [Suspect]
     Indication: DRUG USE FOR UNKNOWN INDICATION
     Dosage: DF
  2. LIORESAL [Suspect]
     Indication: MUSCLE SPASTICITY
     Dosage: 91.52 UG QD INTRATHECAL
     Route: 037

REACTIONS (2)
  - ACCIDENTAL OVERDOSE [None]
  - PROGRESSIVE MULTIPLE SCLEROSIS [None]
